FAERS Safety Report 15830668 (Version 2)
Quarter: 2019Q1

REPORT INFORMATION
  Report Type: Report from Study
  Country: None (occurrence: US)
  Receive Date: 20190116
  Receipt Date: 20190309
  Transmission Date: 20190417
  Serious: Yes (Other)
  Sender: FDA-Public Use
  Company Number: US-ABBVIE-19K-163-2621609-00

PATIENT
  Age: 61 Year
  Sex: Female

DRUGS (3)
  1. HUMIRA [Suspect]
     Active Substance: ADALIMUMAB
     Indication: ANKYLOSING SPONDYLITIS
  2. PREDNISONE. [Concomitant]
     Active Substance: PREDNISONE
     Indication: PRODUCT USED FOR UNKNOWN INDICATION
  3. HUMIRA [Suspect]
     Active Substance: ADALIMUMAB
     Indication: PSORIATIC ARTHROPATHY
     Route: 058

REACTIONS (5)
  - Osteoarthritis [Recovering/Resolving]
  - Malaise [Recovering/Resolving]
  - Mast cell activation syndrome [Unknown]
  - Angioedema [Unknown]
  - Urticaria [Unknown]

NARRATIVE: CASE EVENT DATE: 20190110
